FAERS Safety Report 8229676-8 (Version None)
Quarter: 2012Q1

REPORT INFORMATION
  Report Type: 
  Country: None (occurrence: None)
  Receive Date: 20120322
  Receipt Date: 20120319
  Transmission Date: 20120608
  Serious: Yes (Hospitalization, Other)
  Sender: FDA-Public Use
  Company Number: PHEH2012US006165

PATIENT
  Sex: Female

DRUGS (4)
  1. DIOVAN HCT [Suspect]
     Dosage: 1 DF (160MG OF VALSARTAN/UNSPECIFIED MG OF HYDROCHLOROTHIAZIDE), QD
  2. DIOVAN [Suspect]
     Dosage: 320 MG, QD
  3. FUROSEMIDE [Concomitant]
     Dosage: UNK
  4. ZANTAC [Concomitant]
     Dosage: UNK

REACTIONS (5)
  - CHRONIC OBSTRUCTIVE PULMONARY DISEASE [None]
  - LIMB DISCOMFORT [None]
  - OEDEMA PERIPHERAL [None]
  - BURNING SENSATION [None]
  - RENAL IMPAIRMENT [None]
